FAERS Safety Report 6856078-9 (Version None)
Quarter: 2010Q3

REPORT INFORMATION
  Report Type: 
  Country: None (occurrence: None)
  Receive Date: 20100715
  Receipt Date: 20100715
  Transmission Date: 20110219
  Serious: Yes (Other)
  Sender: FDA-Public Use
  Company Number: None

PATIENT
  Age: 68 Year
  Sex: Male

DRUGS (1)
  1. ISOVUE-370 [Suspect]
     Dosage: ONCE IV
     Route: 042
     Dates: start: 20100304, end: 20100304

REACTIONS (2)
  - INJECTION SITE PAIN [None]
  - TENDONITIS [None]
